FAERS Safety Report 7902465-7 (Version None)
Quarter: 2011Q4

REPORT INFORMATION
  Report Type: 
  Country: None (occurrence: None)
  Receive Date: 20111108
  Receipt Date: 20111104
  Transmission Date: 20120403
  Serious: Yes (Death)
  Sender: FDA-Public Use
  Company Number: US-AMGEN-USASP2011058028

PATIENT
  Age: 87 Year
  Sex: Female
  Weight: 80 kg

DRUGS (14)
  1. ZETIA [Concomitant]
     Dosage: 10 MG, UNK
  2. ARICEPT [Concomitant]
     Dosage: 10 MG, UNK
  3. FOLIC ACID [Concomitant]
  4. NORVASC [Concomitant]
     Dosage: 10 MG, UNK
  5. ASPIRIN [Concomitant]
     Dosage: 81 MG, QD
  6. REQUIP [Concomitant]
     Dosage: 25 MG, UNK
  7. VITAMIN B12                        /00056201/ [Concomitant]
  8. MULTIPLE VITAMINS [Concomitant]
     Dosage: UNK UNK, QD
  9. GLUCOSAMINE [Concomitant]
     Dosage: 500 MG, UNK
  10. NPLATE [Suspect]
     Indication: IDIOPATHIC THROMBOCYTOPENIC PURPURA
     Dosage: 2.8 MUG/KG, UNK
     Dates: start: 20090129, end: 20110420
  11. NAMENDA [Concomitant]
     Dosage: 10 MG, QD
  12. REMERON [Concomitant]
     Dosage: 15 MG, QD
  13. NEXIUM [Concomitant]
     Dosage: 20 MG, UNK
  14. CALCIUM [Concomitant]
     Dosage: 500 MG, UNK

REACTIONS (1)
  - DEATH [None]
